FAERS Safety Report 23999257 (Version 1)
Quarter: 2024Q2

REPORT INFORMATION
  Report Type: Spontaneous
  Country: US (occurrence: None)
  Receive Date: 20240620
  Receipt Date: 20240620
  Transmission Date: 20240716
  Serious: Yes (Other)
  Sender: FDA-Public Use
  Company Number: None

PATIENT
  Age: 62 Year
  Sex: Female

DRUGS (3)
  1. DUPILUMAB [Suspect]
     Active Substance: DUPILUMAB
     Indication: Nasal polyps
     Dosage: OTHER QUANTITY : 1 INJECTION(S);?OTHER FREQUENCY : EVERY 2 WEEKS;?OTHER ROUTE : ABDOMINAL INJECTION;
     Route: 050
     Dates: start: 20230630, end: 20240501
  2. LEVOTHYROXINE [Concomitant]
  3. IBUPROFEN [Concomitant]

REACTIONS (1)
  - Arthropathy [None]

NARRATIVE: CASE EVENT DATE: 20240318
